FAERS Safety Report 14873243 (Version 2)
Quarter: 2018Q4

REPORT INFORMATION
  Report Type: Spontaneous
  Country: US (occurrence: US)
  Receive Date: 20180510
  Receipt Date: 20181016
  Transmission Date: 20190204
  Serious: No
  Sender: FDA-Public Use
  Company Number: US-PFIZER INC-2018184202

PATIENT
  Age: 71 Year
  Sex: Female
  Weight: 47.62 kg

DRUGS (4)
  1. PREDNISONE. [Suspect]
     Active Substance: PREDNISONE
     Indication: RHEUMATOID ARTHRITIS
     Dosage: 4 MG, 1X/DAY
     Route: 048
     Dates: start: 2016
  2. XELJANZ [Suspect]
     Active Substance: TOFACITINIB CITRATE
     Dosage: 5 MG, UNK
     Dates: start: 2017
  3. PREDNISONE. [Suspect]
     Active Substance: PREDNISONE
     Dosage: UNK, UNK (HALF OF A TABLET)
  4. XELJANZ XR [Suspect]
     Active Substance: TOFACITINIB CITRATE
     Indication: RHEUMATOID ARTHRITIS
     Dosage: 11 MG, 1X/DAY
     Route: 048
     Dates: start: 2016

REACTIONS (4)
  - Contusion [Recovering/Resolving]
  - Condition aggravated [Recovering/Resolving]
  - Limb injury [Unknown]
  - Weight increased [Unknown]
